FAERS Safety Report 4496811-7 (Version None)
Quarter: 2004Q4

REPORT INFORMATION
  Report Type: 
  Country: None (occurrence: None)
  Receive Date: 20041109
  Receipt Date: 20040808
  Transmission Date: 20050328
  Serious: Yes (Other)
  Sender: FDA-Public Use
  Company Number: PHEH2004US08689

PATIENT
  Age: 45 Year
  Sex: Female
  Weight: 49 kg

DRUGS (4)
  1. FEMARA [Suspect]
     Indication: BREAST CANCER FEMALE
     Dosage: 2.5 G, QD
     Route: 048
     Dates: start: 20031101, end: 20040707
  2. FOSAMAX [Concomitant]
  3. SYNTHROID [Concomitant]
  4. RADIATION THERAPY [Suspect]
     Dates: start: 20040601

REACTIONS (9)
  - ASCITES [None]
  - ASPIRATION PLEURAL CAVITY [None]
  - CATHETERISATION CARDIAC [None]
  - FLUID RETENTION [None]
  - GENERALISED OEDEMA [None]
  - OEDEMA PERIPHERAL [None]
  - PERIORBITAL OEDEMA [None]
  - PLEURAL EFFUSION [None]
  - RESTRICTIVE CARDIOMYOPATHY [None]
